FAERS Safety Report 17386702 (Version 2)
Quarter: 2020Q1

REPORT INFORMATION
  Report Type: Spontaneous
  Country: US (occurrence: US)
  Receive Date: 20200206
  Receipt Date: 20200316
  Transmission Date: 20200409
  Serious: Yes (Hospitalization)
  Sender: FDA-Public Use
  Company Number: US-PFIZER INC-2020048965

PATIENT
  Age: 82 Year
  Sex: Female

DRUGS (2)
  1. AMLODIPINE BESILATE [Suspect]
     Active Substance: AMLODIPINE BESYLATE
     Indication: BLOOD PRESSURE ABNORMAL
     Dosage: UNK
  2. CALTRATE [Suspect]
     Active Substance: CALCIUM CARBONATE
     Indication: BONE LOSS
     Dosage: UNK

REACTIONS (2)
  - Bone pain [Unknown]
  - Dental caries [Not Recovered/Not Resolved]
